FAERS Safety Report 18119472 (Version 2)
Quarter: 2020Q3

REPORT INFORMATION
  Report Type: Spontaneous
  Country: US (occurrence: US)
  Receive Date: 20200806
  Receipt Date: 20200825
  Transmission Date: 20201103
  Serious: Yes (Other)
  Sender: FDA-Public Use
  Company Number: US-GILEAD-2020-0488723

PATIENT
  Age: 46 Year
  Sex: Male

DRUGS (1)
  1. ATRIPLA [Suspect]
     Active Substance: EFAVIRENZ\EMTRICITABINE\TENOFOVIR DISOPROXIL FUMARATE
     Indication: HIV INFECTION
     Dosage: UNK
     Route: 065
     Dates: start: 200611, end: 201709

REACTIONS (8)
  - Osteoporosis [Not Recovered/Not Resolved]
  - Renal injury [Not Recovered/Not Resolved]
  - Chronic kidney disease [Unknown]
  - Osteonecrosis [Unknown]
  - Bone loss [Unknown]
  - Bone density decreased [Unknown]
  - Renal failure [Unknown]
  - Fracture [Not Recovered/Not Resolved]

NARRATIVE: CASE EVENT DATE: 201111
